FAERS Safety Report 4786654-9 (Version None)
Quarter: 2005Q4

REPORT INFORMATION
  Report Type: 
  Country: None (occurrence: None)
  Receive Date: 20051003
  Receipt Date: 20051003
  Transmission Date: 20060501
  Serious: Yes (Life-Threatening, Hospitalization)
  Sender: FDA-Public Use
  Company Number: None

PATIENT
  Sex: Female
  Weight: 58.514 kg

DRUGS (12)
  1. DURAGESIC-100 [Suspect]
     Dosage: SEE ITEM B5
     Dates: start: 20040503
  2. RISPERDAL [Concomitant]
  3. OXYGEN [Concomitant]
  4. TYLENOL (CAPLET) [Concomitant]
  5. TYLENOL W/ CODEINE [Concomitant]
  6. ARTIFICIAL TEARS [Concomitant]
  7. MIRALAX [Concomitant]
  8. ZANTAC [Concomitant]
  9. LEVAQUIN [Concomitant]
  10. SINEMET [Concomitant]
  11. DETROL [Concomitant]
  12. DOCUSATE [Concomitant]

REACTIONS (9)
  - AGITATION [None]
  - ANAEMIA [None]
  - APHASIA [None]
  - CONFUSIONAL STATE [None]
  - DEPRESSED LEVEL OF CONSCIOUSNESS [None]
  - DYSPNOEA [None]
  - LETHARGY [None]
  - OVERDOSE [None]
  - UROSEPSIS [None]
